FAERS Safety Report 9018470 (Version 1)
Quarter: 2013Q1

REPORT INFORMATION
  Report Type: Spontaneous
  Country: US (occurrence: US)
  Receive Date: 20130118
  Receipt Date: 20130118
  Transmission Date: 20140127
  Serious: No
  Sender: FDA-Public Use
  Company Number: US-PFIZER INC-2013022416

PATIENT
  Age: 61 Year
  Sex: Female
  Weight: 84.8 kg

DRUGS (3)
  1. LYRICA [Suspect]
     Indication: FIBROMYALGIA
     Dosage: 150 MG, UNK
     Dates: start: 2007
  2. LYRICA [Suspect]
     Dosage: 225 MG, 2X/DAY
  3. LYRICA [Suspect]
     Dosage: UNK

REACTIONS (2)
  - Cardiac disorder [Not Recovered/Not Resolved]
  - Amnesia [Not Recovered/Not Resolved]
